FAERS Safety Report 11882101 (Version 5)
Quarter: 2016Q2

REPORT INFORMATION
  Report Type: Report from Study
  Country: US (occurrence: US)
  Receive Date: 20151231
  Receipt Date: 20160428
  Transmission Date: 20160815
  Serious: Yes (Hospitalization)
  Sender: FDA-Public Use
  Company Number: US-PFIZER INC-2015442711

PATIENT
  Age: 68 Year
  Sex: Female
  Weight: 69 kg

DRUGS (15)
  1. PIPERACILLIN/TAZOBACTAM [Suspect]
     Active Substance: PIPERACILLIN SODIUM\TAZOBACTAM SODIUM
     Indication: INFECTION PROPHYLAXIS
     Dosage: UNK, ONCE
     Dates: start: 20151210, end: 20151210
  2. PAMIDRONATE [Concomitant]
     Active Substance: PAMIDRONATE DISODIUM
     Indication: PROPHYLAXIS
     Dosage: UNK
     Dates: start: 20140922
  3. ENOXAPARIN [Concomitant]
     Active Substance: ENOXAPARIN
     Indication: THROMBOSIS PROPHYLAXIS
     Dosage: UNK
     Dates: start: 20150428
  4. ZOLPIDEM [Concomitant]
     Active Substance: ZOLPIDEM\ZOLPIDEM TARTRATE
     Indication: INSOMNIA
     Dosage: UNK
     Dates: start: 20150914
  5. OXYCONTIN [Concomitant]
     Active Substance: OXYCODONE HYDROCHLORIDE
     Indication: BONE PAIN
     Dosage: UNK
     Dates: start: 20151006
  6. CEPHALEXIN. [Concomitant]
     Active Substance: CEPHALEXIN
     Indication: CELLULITIS
     Dosage: UNK
     Dates: start: 20151207
  7. SPIRONOLACTONE. [Concomitant]
     Active Substance: SPIRONOLACTONE
     Indication: ASCITES
     Dosage: UNK
     Dates: start: 20150902
  8. DIPHENHYDRAMINE. [Concomitant]
     Active Substance: DIPHENHYDRAMINE
     Indication: INFUSION RELATED REACTION
     Dosage: UNK
     Dates: start: 20151203, end: 20151203
  9. VITAMIN D3 [Concomitant]
     Active Substance: CHOLECALCIFEROL
     Indication: NUTRITIONAL SUPPLEMENTATION
     Dosage: UNK
     Dates: start: 20080118
  10. CALCIUM CITRATE [Concomitant]
     Active Substance: CALCIUM CITRATE
     Indication: NUTRITIONAL SUPPLEMENTATION
     Dosage: UNK
     Dates: start: 20080118
  11. FUROSEMIDE. [Concomitant]
     Active Substance: FUROSEMIDE
     Indication: ASCITES
     Dosage: UNK
     Dates: start: 20150902
  12. OXYCODONE [Concomitant]
     Active Substance: OXYCODONE
     Indication: BONE PAIN
     Dosage: UNK
     Dates: start: 20150914
  13. PF-06664178 [Suspect]
     Active Substance: INVESTIGATIONAL PRODUCT
     Indication: BREAST CANCER
     Dosage: 3.6 MG/KG, UNK
     Route: 042
     Dates: start: 20151203, end: 20151203
  14. PF-06664178 [Suspect]
     Active Substance: INVESTIGATIONAL PRODUCT
     Dosage: 2.4 MG/KG, UNK
     Route: 042
  15. MAGNESIUM CITRATE. [Concomitant]
     Active Substance: MAGNESIUM CITRATE
     Indication: MUSCLE SPASMS
     Dosage: UNK
     Dates: start: 20150914

REACTIONS (17)
  - Ascites [None]
  - Contusion [None]
  - Stomatitis [None]
  - Skin mass [None]
  - Neutropenia [Recovered/Resolved]
  - Oral candidiasis [None]
  - Asthenia [None]
  - Hyponatraemia [None]
  - Anaemia [None]
  - Hypotension [None]
  - Hypokalaemia [None]
  - Skin ulcer [None]
  - Mucosal inflammation [Recovered/Resolved]
  - Fatigue [None]
  - Seizure [Recovered/Resolved]
  - Rash erythematous [None]
  - Chills [None]

NARRATIVE: CASE EVENT DATE: 20151210
